FAERS Safety Report 10071356 (Version 3)
Quarter: 2014Q2

REPORT INFORMATION
  Report Type: Report from Study
  Country: IN (occurrence: IN)
  Receive Date: 20140410
  Receipt Date: 20140612
  Transmission Date: 20141212
  Serious: Yes (Hospitalization, Other)
  Sender: FDA-Public Use
  Company Number: PHHY2014IN041248

PATIENT
  Age: 56 Year
  Sex: Male
  Weight: 79 kg

DRUGS (5)
  1. RASILEZ [Suspect]
     Dosage: UNK UKN, UNK
  2. CO-DIOVAN [Suspect]
     Indication: HYPERTENSION
     Dosage: 1 DF, (VALS 80 MG, HYDR UNK) UNK
     Route: 048
  3. NICORANDIL [Concomitant]
     Indication: CARDIAC DISORDER
     Dosage: 5 MG, QD
     Route: 048
  4. CLOPITAB-A [Concomitant]
     Indication: BLOOD CHOLESTEROL ABNORMAL
     Dosage: 75 MG (AS REPORTED), QD
     Route: 048
  5. GALVUS [Concomitant]
     Indication: DIABETES MELLITUS
     Dosage: 50 MG, QD
     Route: 048

REACTIONS (5)
  - Weight decreased [Recovered/Resolved]
  - Blood glucose increased [Recovered/Resolved]
  - Feeling abnormal [Recovered/Resolved]
  - Hyperhidrosis [Recovered/Resolved]
  - Asthenia [Recovered/Resolved]
